FAERS Safety Report 4488257-2 (Version None)
Quarter: 2004Q4

REPORT INFORMATION
  Report Type: 
  Country: None (occurrence: None)
  Receive Date: 20041028
  Receipt Date: 20041026
  Transmission Date: 20050328
  Serious: Yes (Life-Threatening)
  Sender: FDA-Public Use
  Company Number: PHBS2004JP14368

PATIENT
  Age: 84 Year
  Sex: Male

DRUGS (5)
  1. DIOVAN [Suspect]
     Indication: HYPERTENSION
     Dosage: 80 MG/DAY
     Route: 048
     Dates: start: 20040922, end: 20041015
  2. DAONIL [Suspect]
     Route: 048
     Dates: end: 20041015
  3. ALEVIATIN [Suspect]
     Route: 048
     Dates: end: 20041015
  4. AMLODIN [Concomitant]
     Route: 048
     Dates: end: 20041015
  5. LOXOPROFEN [Concomitant]
     Route: 048
     Dates: end: 20041015

REACTIONS (7)
  - APLASIA PURE RED CELL [None]
  - HAEMATOCRIT DECREASED [None]
  - HAEMOGLOBIN DECREASED [None]
  - MYELODYSPLASTIC SYNDROME [None]
  - PERNICIOUS ANAEMIA [None]
  - PYREXIA [None]
  - RED BLOOD CELL COUNT DECREASED [None]
